FAERS Safety Report 6863222-6 (Version None)
Quarter: 2010Q3

REPORT INFORMATION
  Report Type: 
  Country: None (occurrence: None)
  Receive Date: 20100721
  Receipt Date: 20100709
  Transmission Date: 20110219
  Serious: Yes (Other)
  Sender: FDA-Public Use
  Company Number: PHHY2010CA29084

PATIENT
  Sex: Male
  Weight: 84.5 kg

DRUGS (5)
  1. ALISKIREN ALI+ [Suspect]
     Indication: HYPERTENSION
     Dosage: 150 MG
     Route: 048
     Dates: start: 20100407, end: 20100430
  2. LIPITOR [Concomitant]
  3. MICARDIS [Concomitant]
  4. HYDROCHLOROTHIAZIDE [Concomitant]
  5. PLENDIL [Concomitant]

REACTIONS (5)
  - BLOOD PRESSURE INCREASED [None]
  - EYE IRRITATION [None]
  - EYE PRURITUS [None]
  - HYPERSENSITIVITY [None]
  - VISION BLURRED [None]
